FAERS Safety Report 15830115 (Version 1)
Quarter: 2019Q1

REPORT INFORMATION
  Report Type: Spontaneous
  Country: US (occurrence: US)
  Receive Date: 20190115
  Receipt Date: 20190115
  Transmission Date: 20190417
  Serious: Yes (Other)
  Sender: FDA-Public Use
  Company Number: US-REGENERON PHARMACEUTICALS, INC.-2018-23398

PATIENT

DRUGS (2)
  1. EYLEA [Suspect]
     Active Substance: AFLIBERCEPT
     Indication: PRODUCT USED FOR UNKNOWN INDICATION
     Dosage: UNK
     Route: 031
  2. EYLEA [Suspect]
     Active Substance: AFLIBERCEPT
     Dosage: UNK, RIGHT EYE, LAST DOSE
     Route: 031
     Dates: start: 20141014, end: 20141014

REACTIONS (1)
  - Eye infection staphylococcal [Unknown]
